FAERS Safety Report 17375051 (Version 2)
Quarter: 2020Q1

REPORT INFORMATION
  Report Type: Spontaneous
  Country: US (occurrence: US)
  Receive Date: 20200205
  Receipt Date: 20200211
  Transmission Date: 20200409
  Serious: Yes (Death, Other)
  Sender: FDA-Public Use
  Company Number: US-PFIZER INC-2020042943

PATIENT
  Age: 70 Year
  Sex: Male

DRUGS (13)
  1. DAUNORUBICIN [Concomitant]
     Active Substance: DAUNORUBICIN
     Indication: ACUTE MYELOID LEUKAEMIA
     Dosage: 120 MG, DAILY (DAYS 1-3)
     Route: 042
     Dates: start: 1980
  2. THIOGUANINE [Concomitant]
     Active Substance: THIOGUANINE
     Dosage: 200 MG, 2X/DAY (6-10)
     Route: 048
     Dates: start: 198011, end: 198011
  3. CYTARABINE. [Suspect]
     Active Substance: CYTARABINE
     Dosage: 50 MG, UNK (DAY 6)
     Route: 042
     Dates: start: 198011, end: 198011
  4. CYTARABINE. [Suspect]
     Active Substance: CYTARABINE
     Dosage: 3000 MG/M2, UNK (EVERY 12 HOURS OR 6 G/EVERY 12 HOURS)
     Route: 042
     Dates: start: 198012, end: 198012
  5. DAUNORUBICIN [Concomitant]
     Active Substance: DAUNORUBICIN
     Dosage: 120 MG, UNK (DAYS 6-8)
     Route: 042
     Dates: start: 198011, end: 198011
  6. THIOGUANINE [Concomitant]
     Active Substance: THIOGUANINE
     Dosage: 160 MG, 2X/DAY (DAYS 1-5)
     Route: 048
     Dates: start: 198011, end: 198011
  7. VASOPRESSIN. [Concomitant]
     Active Substance: VASOPRESSIN
     Indication: ACUTE MYELOID LEUKAEMIA
     Dosage: 200 MG, DAILY (RECEIVED 9 CYCLES, ONE CYCLE EVERY THREE WEEKS)
     Route: 042
     Dates: start: 1980, end: 1980
  8. THIOGUANINE [Concomitant]
     Active Substance: THIOGUANINE
     Indication: ACUTE MYELOID LEUKAEMIA
     Dosage: 200 MG, 2X/DAY (DAYS 3-7)
     Route: 048
     Dates: start: 1980
  9. CYTARABINE. [Suspect]
     Active Substance: CYTARABINE
     Indication: ACUTE MYELOID LEUKAEMIA
     Dosage: 50 MG, UNK (DAY 3)
     Route: 042
     Dates: start: 1980
  10. DAUNORUBICIN [Concomitant]
     Active Substance: DAUNORUBICIN
     Dosage: 90 MG, DAILY (DAYS 1-3)
     Route: 042
     Dates: start: 198003
  11. 5-AZACYTIDINE [Concomitant]
     Active Substance: AZACITIDINE
     Indication: ACUTE MYELOID LEUKAEMIA
     Dosage: 50 MG, EVERY 4 HRS (DAYS 1-5)
     Route: 042
     Dates: start: 198011, end: 198011
  12. CYTARABINE. [Suspect]
     Active Substance: CYTARABINE
     Dosage: 200 MG, 2X/DAY (DAYS 1-5)
     Route: 042
     Dates: start: 198003
  13. THIOGUANINE [Concomitant]
     Active Substance: THIOGUANINE
     Dosage: 200 MG, 2X/DAY  (DAYS 1-5)
     Route: 048
     Dates: start: 198003

REACTIONS (2)
  - Thrombocytopenia [Fatal]
  - Nervous system disorder [Fatal]

NARRATIVE: CASE EVENT DATE: 198012
